FAERS Safety Report 11375014 (Version 1)
Quarter: 2015Q3

REPORT INFORMATION
  Report Type: Spontaneous
  Country: JP (occurrence: JP)
  Receive Date: 20150813
  Receipt Date: 20150813
  Transmission Date: 20151125
  Serious: Yes (Death, Other)
  Sender: FDA-Public Use
  Company Number: JP-BAYER-2015-392038

PATIENT
  Age: 75 Year
  Sex: Male

DRUGS (3)
  1. NEXAVAR [Suspect]
     Active Substance: SORAFENIB
     Indication: HEPATOCELLULAR CARCINOMA
     Dosage: 200 MG, QD
     Dates: start: 2010
  2. NEXAVAR [Suspect]
     Active Substance: SORAFENIB
     Indication: HEPATOCELLULAR CARCINOMA
     Dosage: 400 MG, DAILY
     Route: 048
     Dates: start: 200812, end: 200901
  3. NEXAVAR [Suspect]
     Active Substance: SORAFENIB
     Indication: HEPATOCELLULAR CARCINOMA
     Dosage: 200 MG, QD
     Route: 048
     Dates: start: 200904, end: 200904

REACTIONS (9)
  - Diarrhoea [None]
  - Malaise [None]
  - Spinal cord disorder [None]
  - Diarrhoea [None]
  - Epistaxis [None]
  - Death [Fatal]
  - Malaise [None]
  - Palmar-plantar erythrodysaesthesia syndrome [None]
  - Hypertension [None]

NARRATIVE: CASE EVENT DATE: 2009
